FAERS Safety Report 17024109 (Version 1)
Quarter: 2019Q4

REPORT INFORMATION
  Report Type: Spontaneous
  Country: JP (occurrence: JP)
  Receive Date: 20191113
  Receipt Date: 20191113
  Transmission Date: 20200122
  Serious: Yes (Other)
  Sender: FDA-Public Use
  Company Number: JP-ASTELLAS-2019JP025076

PATIENT
  Age: 0 Day
  Sex: Female

DRUGS (2)
  1. CIMZIA [Suspect]
     Active Substance: CERTOLIZUMAB PEGOL
     Indication: EXPOSURE VIA BREAST MILK
     Dosage: UNK UNK, UNKNOWN FREQ.
     Route: 063
  2. PROGRAF [Suspect]
     Active Substance: TACROLIMUS
     Indication: EXPOSURE VIA BREAST MILK
     Dosage: UNK UNK, UNKNOWN FREQ.
     Route: 063

REACTIONS (2)
  - Blood creatine phosphokinase increased [Recovering/Resolving]
  - Exposure via breast milk [Unknown]

NARRATIVE: CASE EVENT DATE: 20190922
